FAERS Safety Report 5939822-4 (Version None)
Quarter: 2008Q4

REPORT INFORMATION
  Report Type: 
  Country: None (occurrence: None)
  Receive Date: 20081031
  Receipt Date: 20081031
  Transmission Date: 20090506
  Serious: No
  Sender: FDA-Public Use
  Company Number: None

PATIENT
  Sex: Female
  Weight: 97.5234 kg

DRUGS (1)
  1. LOVENOX [Suspect]
     Indication: HYPERCOAGULATION
     Dosage: 80MG BID SQ
     Route: 058
     Dates: start: 20040610, end: 20081029

REACTIONS (3)
  - DEVICE BREAKAGE [None]
  - INJECTION SITE HAEMATOMA [None]
  - PRODUCT QUALITY ISSUE [None]
